FAERS Safety Report 4597809-0 (Version None)
Quarter: 2005Q1

REPORT INFORMATION
  Report Type: 
  Country: None (occurrence: None)
  Receive Date: 20050125
  Receipt Date: 20041115
  Transmission Date: 20050727
  Serious: No
  Sender: FDA-Public Use
  Company Number: US96070304A

PATIENT
  Age: 71 Year
  Sex: Female
  Weight: 48 kg

DRUGS (9)
  1. FORTEO [Suspect]
     Indication: OSTEOPOROSIS
     Dosage: 20 UG/1 DAY
     Dates: start: 20041105
  2. PROZAC [Suspect]
     Indication: DEPRESSION
     Dosage: 20 MG/ 1 DAY
     Dates: start: 19950401
  3. MULTI-VITAMIN [Concomitant]
  4. CALCIUM PLUS D [Concomitant]
  5. LOMOTIL [Concomitant]
  6. VITAMIN E [Concomitant]
  7. FOSAMAX [Concomitant]
  8. FLAXSEED [Concomitant]
  9. OMEGA - 3 FISH OIL [Concomitant]

REACTIONS (10)
  - BLOOD PRESSURE FLUCTUATION [None]
  - BLOOD PRESSURE INCREASED [None]
  - EXCITABILITY [None]
  - HEADACHE [None]
  - HEART RATE INCREASED [None]
  - OSTEOPENIA [None]
  - OSTEOPOROSIS [None]
  - SPINAL COMPRESSION FRACTURE [None]
  - TENSION [None]
  - WEIGHT DECREASED [None]
